FAERS Safety Report 4746698-X (Version None)
Quarter: 2005Q3

REPORT INFORMATION
  Report Type: 
  Country: None (occurrence: None)
  Receive Date: 20050815
  Receipt Date: 20050808
  Transmission Date: 20060218
  Serious: Yes (Death, Life-Threatening)
  Sender: FDA-Public Use
  Company Number: SEWYE888308AUG05

PATIENT
  Age: 65 Year
  Sex: Male

DRUGS (5)
  1. TAZOCIN [Suspect]
     Indication: SEPSIS
     Dosage: 4 G 3X PER 1 DAY; 4 G 2X PER 1 DAY
     Route: 042
     Dates: start: 20050617, end: 20050101
  2. TAZOCIN [Suspect]
     Indication: SEPSIS
     Dosage: 4 G 3X PER 1 DAY; 4 G 2X PER 1 DAY
     Route: 042
     Dates: start: 20050101, end: 20050702
  3. METRONIDAZOLE [Concomitant]
  4. CIPROFLOXACIN [Concomitant]
  5. MERONEM (MEROPENEM) [Concomitant]

REACTIONS (1)
  - GRANULOCYTOPENIA [None]
